FAERS Safety Report 10145458 (Version 3)
Quarter: 2014Q2

REPORT INFORMATION
  Report Type: Spontaneous
  Country: GB (occurrence: GB)
  Receive Date: 20140501
  Receipt Date: 20140520
  Transmission Date: 20141212
  Serious: Yes (Other)
  Sender: FDA-Public Use
  Company Number: GB-JNJFOC-20140414440

PATIENT
  Age: 51 Year
  Sex: Male
  Weight: 65 kg

DRUGS (2)
  1. PARACETAMOL [Suspect]
     Indication: HEAD INJURY
     Route: 065
     Dates: start: 20140301, end: 20140303
  2. ACETAMINOPHEN [Suspect]
     Indication: HEAD INJURY
     Route: 042
     Dates: start: 20140301, end: 20140303

REACTIONS (2)
  - Metabolic acidosis [Recovered/Resolved]
  - Off label use [Unknown]
